FAERS Safety Report 5889478-4 (Version None)
Quarter: 2008Q3

REPORT INFORMATION
  Report Type: 
  Country: None (occurrence: None)
  Receive Date: 20080919
  Receipt Date: 20080909
  Transmission Date: 20090109
  Serious: Yes (Other)
  Sender: FDA-Public Use
  Company Number: US-ELI_LILLY_AND_COMPANY-US200809002201

PATIENT
  Age: 68 Year

DRUGS (3)
  1. HUMULIN R [Suspect]
  2. LANTUS [Concomitant]
  3. DIOVAN [Concomitant]

REACTIONS (1)
  - NEOPLASM MALIGNANT [None]
